FAERS Safety Report 4335382-2 (Version None)
Quarter: 2004Q2

REPORT INFORMATION
  Report Type: 
  Country: None (occurrence: None)
  Receive Date: 20040408
  Receipt Date: 20040408
  Transmission Date: 20050107
  Serious: No
  Sender: FDA-Public Use
  Company Number: None

PATIENT

DRUGS (1)
  1. FENTANYL [Suspect]
     Dosage: 1-3 ML IV
     Route: 042
     Dates: start: 20040401

REACTIONS (2)
  - APNOEA [None]
  - HYPOTENSION [None]
